FAERS Safety Report 5911699-2 (Version None)
Quarter: 2008Q4

REPORT INFORMATION
  Report Type: 
  Country: None (occurrence: None)
  Receive Date: 20081007
  Receipt Date: 20080929
  Transmission Date: 20090506
  Serious: No
  Sender: FDA-Public Use
  Company Number: FR-ELI_LILLY_AND_COMPANY-FR200806001839

PATIENT
  Age: 71 Year
  Sex: Female
  Weight: 115 kg

DRUGS (6)
  1. BYETTA [Suspect]
     Indication: TYPE 2 DIABETES MELLITUS
     Dosage: 5 UG, 2/D
     Route: 058
     Dates: start: 20080404, end: 20080604
  2. STAGID [Concomitant]
     Indication: TYPE 2 DIABETES MELLITUS
     Dosage: 3 D/F, DAILY (1/D)
     Route: 048
  3. DIAMICRON [Concomitant]
     Indication: TYPE 2 DIABETES MELLITUS
     Dosage: UNK, UNKNOWN
     Route: 065
  4. NOVONORM [Concomitant]
     Indication: TYPE 2 DIABETES MELLITUS
     Dosage: 4 MG, 3/D
     Route: 048
  5. ZOCOR [Concomitant]
     Indication: DYSLIPIDAEMIA
     Dosage: 20 MG, DAILY (1/D)
     Route: 048
  6. PLAVIX [Concomitant]
     Indication: PHLEBITIS
     Dosage: 1 D/F, DAILY (1/D)
     Route: 048

REACTIONS (1)
  - DYSPNOEA [None]
